FAERS Safety Report 4319186-2 (Version None)
Quarter: 2004Q1

REPORT INFORMATION
  Report Type: 
  Country: None (occurrence: None)
  Receive Date: 20040315
  Receipt Date: 20031209
  Transmission Date: 20041129
  Serious: Yes (Hospitalization)
  Sender: FDA-Public Use
  Company Number: 2003189463US

PATIENT

DRUGS (1)
  1. BEXTRA [Suspect]

REACTIONS (11)
  - ANGINA UNSTABLE [None]
  - ATRIAL FIBRILLATION [None]
  - DIARRHOEA [None]
  - DIZZINESS [None]
  - DYSPEPSIA [None]
  - HYPERTENSION [None]
  - INJURY [None]
  - MYALGIA [None]
  - NAUSEA [None]
  - RASH [None]
  - SYNCOPE [None]
